FAERS Safety Report 10966589 (Version 1)
Quarter: 2015Q1

REPORT INFORMATION
  Report Type: Spontaneous
  Country: US (occurrence: None)
  Receive Date: 20150226
  Receipt Date: 20150226
  Transmission Date: 20150721
  Serious: No
  Sender: FDA-Public Use
  Company Number: TPA2009A02403

PATIENT
  Age: 79 Year
  Sex: Male
  Weight: 97.07 kg

DRUGS (5)
  1. PREDNISONE (PREDNISONE) [Concomitant]
     Active Substance: PREDNISONE
  2. LIPITOR [Concomitant]
     Active Substance: ATORVASTATIN CALCIUM
  3. ULORIC [Suspect]
     Active Substance: FEBUXOSTAT
     Indication: GOUT
     Route: 048
     Dates: start: 20090720
  4. AVODART (DUTASTERIDE) [Concomitant]
  5. INDOMETHACIN (INDOMETHACIN) [Concomitant]
     Active Substance: INDOMETHACIN

REACTIONS (2)
  - Gout [None]
  - Iron deficiency anaemia [None]

NARRATIVE: CASE EVENT DATE: 20090727
